APPROVED DRUG PRODUCT: DYNACIN
Active Ingredient: MINOCYCLINE HYDROCHLORIDE
Strength: EQ 50MG BASE
Dosage Form/Route: CAPSULE;ORAL
Application: A063067 | Product #003
Applicant: ALVOGEN INC
Approved: Aug 14, 1990 | RLD: No | RS: No | Type: DISCN